FAERS Safety Report 10160842 (Version 1)
Quarter: 2014Q2

REPORT INFORMATION
  Report Type: Spontaneous
  Country: US (occurrence: US)
  Receive Date: 20140508
  Receipt Date: 20140508
  Transmission Date: 20141212
  Serious: No
  Sender: FDA-Public Use
  Company Number: US-TARO-2014P1001339

PATIENT
  Sex: Female

DRUGS (2)
  1. AMMONIUM LACTATE CREAM (BASE) 12% [Suspect]
  2. FLUOCINONIDE CREAM USP 0.05% [Suspect]

REACTIONS (1)
  - Coeliac disease [Unknown]
